FAERS Safety Report 9106288 (Version 1)
Quarter: 2013Q1

REPORT INFORMATION
  Report Type: Spontaneous
  Country: US (occurrence: US)
  Receive Date: 20130220
  Receipt Date: 20130220
  Transmission Date: 20140127
  Serious: Yes (Other)
  Sender: FDA-Public Use
  Company Number: US-ASTRAZENECA-2013SE09698

PATIENT
  Sex: Female

DRUGS (2)
  1. FASLODEX [Suspect]
     Route: 030
     Dates: start: 201212
  2. FASLODEX [Suspect]
     Route: 030

REACTIONS (1)
  - Breast cancer [Unknown]
